FAERS Safety Report 8577025-8 (Version None)
Quarter: 2012Q3

REPORT INFORMATION
  Report Type: 
  Country: None (occurrence: None)
  Receive Date: 20120807
  Receipt Date: 20120727
  Transmission Date: 20120928
  Serious: Yes (Hospitalization)
  Sender: FDA-Public Use
  Company Number: US-BAYER-2012-078575

PATIENT
  Age: 34 Year
  Sex: Female

DRUGS (4)
  1. YASMIN [Suspect]
  2. DEPAKOTE [Concomitant]
     Dosage: 1000 MG, HS
     Dates: start: 20071003
  3. CYMBALTA [Concomitant]
     Dosage: 60 DAILY
     Dates: start: 20071003
  4. ATIVAN [Concomitant]
     Dosage: 1 MG, TID
     Dates: start: 20071003

REACTIONS (1)
  - DEEP VEIN THROMBOSIS [None]
